FAERS Safety Report 8494675-8 (Version None)
Quarter: 2012Q3

REPORT INFORMATION
  Report Type: 
  Country: None (occurrence: None)
  Receive Date: 20120709
  Receipt Date: 20120703
  Transmission Date: 20120928
  Serious: Yes (Other)
  Sender: FDA-Public Use
  Company Number: PHHY2012JP057028

PATIENT
  Age: 53 Year
  Sex: Male

DRUGS (18)
  1. WARFARIN SODIUM [Interacting]
     Dosage: 1.75 MG, UNK
  2. MILNACIPRAN [Interacting]
     Dosage: 150 MG, UNK
  3. BUCOLOME [Concomitant]
     Dosage: 300 MG, UNK
  4. NITRAZEPAM [Concomitant]
     Dosage: 5 MG, UNK
  5. WARFARIN SODIUM [Interacting]
     Dosage: 1.5 MG, UNK
  6. MILNACIPRAN [Interacting]
     Dosage: 100 MG, UNK
  7. ZOLPIDEM [Concomitant]
     Dosage: 5 MG, UNK
  8. MILNACIPRAN [Interacting]
     Dosage: 40 MG, UNK
  9. MILNACIPRAN [Interacting]
     Dosage: 125 MG, UNK
  10. MILNACIPRAN [Interacting]
     Dosage: 175 MG, UNK
  11. ALPRAZOLAM [Concomitant]
     Dosage: 1.2 MG, UNK
  12. WARFARIN SODIUM [Suspect]
     Indication: AORTIC VALVE REPLACEMENT
     Dosage: 2 MG, UNK
  13. LOSARTAN POTASSIUM [Concomitant]
     Dosage: 50 MG, UNK
  14. TRAZODONE HCL [Concomitant]
     Dosage: 25 MG, UNK
  15. MILNACIPRAN [Interacting]
     Dosage: 50 MG, UNK
  16. BUNAZOSIN [Concomitant]
     Dosage: 6 MG, UNK
  17. MILNACIPRAN [Interacting]
     Dosage: 30 MG, UNK
  18. ARIPIPRAZOLE [Concomitant]
     Dosage: 3 TO 6 MG/DAY

REACTIONS (2)
  - INTERNATIONAL NORMALISED RATIO INCREASED [None]
  - DRUG INTERACTION [None]
